FAERS Safety Report 8287810-8 (Version None)
Quarter: 2012Q2

REPORT INFORMATION
  Report Type: 
  Country: None (occurrence: None)
  Receive Date: 20120416
  Receipt Date: 20120406
  Transmission Date: 20120825
  Serious: Yes (Other)
  Sender: FDA-Public Use
  Company Number: US-BAYER-2012-034214

PATIENT
  Age: 52 Year
  Sex: Female
  Weight: 57 kg

DRUGS (1)
  1. ALEVE (CAPLET) [Suspect]
     Indication: HEADACHE
     Dosage: 2 DF, ONCE
     Route: 048
     Dates: start: 20120401, end: 20120401

REACTIONS (9)
  - GENERALISED ERYTHEMA [None]
  - BLOOD PRESSURE DECREASED [None]
  - ERYTHEMA [None]
  - EAR PRURITUS [None]
  - HYPERSENSITIVITY [None]
  - DYSPNOEA [None]
  - PRURITUS [None]
  - NAUSEA [None]
  - PRESYNCOPE [None]
